FAERS Safety Report 16064408 (Version 1)
Quarter: 2019Q1

REPORT INFORMATION
  Report Type: Spontaneous
  Country: US (occurrence: US)
  Receive Date: 20190312
  Receipt Date: 20190312
  Transmission Date: 20190418
  Serious: Yes (Other)
  Sender: FDA-Public Use
  Company Number: US-UCBSA-2019009748

PATIENT
  Sex: Female

DRUGS (2)
  1. KEPPRA [Suspect]
     Active Substance: LEVETIRACETAM
     Indication: SEIZURE
     Dosage: UNK
     Dates: start: 2018
  2. LAMICTAL [Concomitant]
     Active Substance: LAMOTRIGINE
     Indication: EPILEPSY
     Dosage: 1500 MG, 2X/DAY (BID)

REACTIONS (9)
  - Seizure [Unknown]
  - Concussion [Unknown]
  - Post concussion syndrome [Unknown]
  - Amnesia [Unknown]
  - Face injury [Unknown]
  - Anxiety [Unknown]
  - Fatigue [Unknown]
  - Facial bones fracture [Unknown]
  - Tooth fracture [Unknown]

NARRATIVE: CASE EVENT DATE: 2018
